FAERS Safety Report 18449653 (Version 2)
Quarter: 2020Q4

REPORT INFORMATION
  Report Type: Spontaneous
  Country: SE (occurrence: SE)
  Receive Date: 20201030
  Receipt Date: 20201208
  Transmission Date: 20210114
  Serious: Yes (Hospitalization)
  Sender: FDA-Public Use
  Company Number: SE-JNJFOC-20201031961

PATIENT
  Age: 70 Year
  Sex: Female
  Weight: 69 kg

DRUGS (3)
  1. DEXAMETHASONE. [Concomitant]
     Active Substance: DEXAMETHASONE
     Route: 065
     Dates: start: 20200824, end: 20200825
  2. DARZALEX [Suspect]
     Active Substance: DARATUMUMAB
     Indication: PLASMA CELL MYELOMA RECURRENT
     Route: 058
     Dates: start: 20200824, end: 20200907
  3. ALVEDON [Concomitant]
     Active Substance: ACETAMINOPHEN
     Route: 065
     Dates: start: 20200824, end: 20200907

REACTIONS (11)
  - Gait disturbance [Recovering/Resolving]
  - Depression [Recovering/Resolving]
  - Dyspnoea [Recovering/Resolving]
  - Pharyngeal swelling [Recovering/Resolving]
  - Limb discomfort [Recovering/Resolving]
  - Constipation [Recovering/Resolving]
  - Pyrexia [Recovering/Resolving]
  - Chills [Recovering/Resolving]
  - Renal failure [Recovering/Resolving]
  - Disturbance in attention [Recovering/Resolving]
  - Dysphagia [Recovering/Resolving]

NARRATIVE: CASE EVENT DATE: 2020
